FAERS Safety Report 5123278-8 (Version None)
Quarter: 2006Q4

REPORT INFORMATION
  Report Type: 
  Country: None (occurrence: None)
  Receive Date: 20061009
  Receipt Date: 20060914
  Transmission Date: 20070319
  Serious: Yes (Death, Life-Threatening)
  Sender: FDA-Public Use
  Company Number: JP-JPN-A19995314

PATIENT
  Age: 7 Year
  Sex: Female
  Weight: 15 kg

DRUGS (9)
  1. FLOLAN [Suspect]
     Indication: PULMONARY HYPERTENSION
     Route: 042
     Dates: start: 19990423, end: 19990423
  2. ASPIRIN [Concomitant]
     Indication: PULMONARY HYPERTENSION
     Dosage: 140MG PER DAY
     Route: 048
     Dates: start: 19981101, end: 19990422
  3. CAPTOPRIL [Concomitant]
     Indication: PULMONARY HYPERTENSION
     Dosage: 99MG PER DAY
     Route: 048
     Dates: start: 19990302, end: 19990422
  4. MORPHINE [Concomitant]
     Indication: SEDATION
     Dosage: 1MG THREE TIMES PER DAY
     Route: 042
     Dates: start: 19990423, end: 19990423
  5. LANIRAPID [Concomitant]
     Indication: PULMONARY HYPERTENSION
     Route: 048
     Dates: start: 19981001, end: 19990422
  6. LASIX [Concomitant]
     Indication: PULMONARY HYPERTENSION
     Route: 048
     Dates: start: 19981001, end: 19990422
  7. NEUER [Concomitant]
     Indication: PULMONARY HYPERTENSION
     Route: 048
     Dates: start: 19981101, end: 19990422
  8. NIFEDIPINE [Concomitant]
     Indication: PULMONARY HYPERTENSION
     Route: 048
     Dates: start: 19990201, end: 19990422
  9. DORNER [Concomitant]
     Indication: PULMONARY HYPERTENSION
     Route: 048
     Dates: start: 19981101, end: 19990422

REACTIONS (6)
  - BRADYCARDIA [None]
  - C-REACTIVE PROTEIN INCREASED [None]
  - COUGH [None]
  - HYPOXIA [None]
  - OXYGEN SATURATION DECREASED [None]
  - PYREXIA [None]
